FAERS Safety Report 7272380-3 (Version None)
Quarter: 2010Q4

REPORT INFORMATION
  Report Type: 
  Country: None (occurrence: None)
  Receive Date: 20101213
  Receipt Date: 20091016
  Transmission Date: 20110411
  Serious: Yes (Other)
  Sender: FDA-Public Use
  Company Number: US-JNJFOC-20091005836

PATIENT
  Age: 43 Year
  Sex: Male
  Weight: 86.1834 kg

DRUGS (2)
  1. PEPCID COMPLETE [Suspect]
     Indication: DYSPEPSIA
     Dosage: 1 DOSE(S), 1 IN 2 HOUR, ORAL
     Route: 048
     Dates: start: 20091001, end: 20091001
  2. TUMS (CALCIUM CARBONATE) [Concomitant]

REACTIONS (3)
  - DRUG INEFFECTIVE [None]
  - INAPPROPRIATE SCHEDULE OF DRUG ADMINISTRATION [None]
  - OVERDOSE [None]
